FAERS Safety Report 4968698-7 (Version None)
Quarter: 2006Q2

REPORT INFORMATION
  Report Type: 
  Country: None (occurrence: None)
  Receive Date: 20060411
  Receipt Date: 20060330
  Transmission Date: 20061013
  Serious: Yes (Other)
  Sender: FDA-Public Use
  Company Number: PHEH2006US04222

PATIENT
  Sex: Male

DRUGS (1)
  1. ZOMETA [Suspect]
     Indication: LUNG NEOPLASM MALIGNANT
     Dosage: UNSPECIFIED

REACTIONS (9)
  - ANXIETY [None]
  - BONE DISORDER [None]
  - DYSPHAGIA [None]
  - EMOTIONAL DISTRESS [None]
  - ORAL SURGERY [None]
  - OSTEONECROSIS [None]
  - PAIN [None]
  - SCAR [None]
  - STOMATITIS NECROTISING [None]
